FAERS Safety Report 21763048 (Version 2)
Quarter: 2022Q4

REPORT INFORMATION
  Report Type: Spontaneous
  Country: CZ (occurrence: CZ)
  Receive Date: 20221221
  Receipt Date: 20221230
  Transmission Date: 20230113
  Serious: Yes (Death, Other)
  Sender: FDA-Public Use
  Company Number: CZ-002147023-NVSC2022CZ232512

PATIENT
  Sex: Female

DRUGS (5)
  1. PREGABALIN [Suspect]
     Active Substance: PREGABALIN
     Indication: Pain
     Dosage: UNK
     Route: 065
  2. FENTANYL [Suspect]
     Active Substance: FENTANYL
     Indication: Abdominal pain
     Dosage: UNK
     Route: 065
  3. FENTANYL [Suspect]
     Active Substance: FENTANYL
     Indication: Pain
  4. FENTANYL [Suspect]
     Active Substance: FENTANYL
     Indication: Pathological fracture
  5. FENTANYL [Suspect]
     Active Substance: FENTANYL
     Indication: Neuralgia

REACTIONS (8)
  - Death [Fatal]
  - Pathological fracture [Unknown]
  - Abdominal pain [Unknown]
  - Anger [Unknown]
  - Neuralgia [Unknown]
  - Depressed mood [Unknown]
  - Asthenia [Unknown]
  - Drug ineffective [Unknown]

NARRATIVE: CASE EVENT DATE: 20220601
